FAERS Safety Report 5328422-5 (Version None)
Quarter: 2007Q2

REPORT INFORMATION
  Report Type: 
  Country: None (occurrence: None)
  Receive Date: 20070518
  Receipt Date: 20070508
  Transmission Date: 20071010
  Serious: Yes (Other)
  Sender: FDA-Public Use
  Company Number: US-NOVOPROD-263522

PATIENT
  Age: 44 Year
  Sex: Male

DRUGS (2)
  1. NOVOLOG MIX 70/30 [Suspect]
     Indication: DIABETES MELLITUS
     Dosage: UNKNOWN
     Route: 058
     Dates: start: 20070504, end: 20070505
  2. ANALGESIC                          /00161603/ [Concomitant]
     Indication: BACK PAIN

REACTIONS (3)
  - DYSPNOEA [None]
  - EYE SWELLING [None]
  - HEADACHE [None]
